FAERS Safety Report 9593080 (Version 1)
Quarter: 2013Q4

REPORT INFORMATION
  Report Type: Spontaneous
  Country: US (occurrence: None)
  Receive Date: 20131002
  Receipt Date: 20131002
  Transmission Date: 20140711
  Serious: Yes (Death)
  Sender: FDA-Public Use
  Company Number: ALK-2013-002015

PATIENT
  Age: 22 Year
  Sex: Male
  Weight: 56.7 kg

DRUGS (2)
  1. VIVITROL [Suspect]
     Indication: DRUG DEPENDENCE
     Dosage: QMO,
     Route: 030
     Dates: start: 20120831
  2. ABILIFY (ARIPIPRAZOLE) [Concomitant]

REACTIONS (1)
  - Drowning [None]
